FAERS Safety Report 10103102 (Version 4)
Quarter: 2015Q3

REPORT INFORMATION
  Report Type: Spontaneous
  Country: US (occurrence: US)
  Receive Date: 20140424
  Receipt Date: 20150729
  Transmission Date: 20151125
  Serious: Yes (Disabling, Other)
  Sender: FDA-Public Use
  Company Number: US-GLAXOSMITHKLINE-A1069787A

PATIENT
  Age: 77 Year
  Sex: Male
  Weight: 68.2 kg

DRUGS (3)
  1. VENTOLIN [Suspect]
     Active Substance: ALBUTEROL SULFATE
     Indication: ASTHMA
     Dosage: UNKNOWN
     Route: 055
     Dates: start: 2011
  2. PROAIR HFA [Suspect]
     Active Substance: ALBUTEROL SULFATE
     Indication: ASTHMA
     Dosage: UNK, U
  3. ADVAIR HFA [Suspect]
     Active Substance: FLUTICASONE PROPIONATE\SALMETEROL XINAFOATE
     Indication: ASTHMA
     Dosage: 1 PUFF(S), BID
     Route: 055
     Dates: start: 2011

REACTIONS (5)
  - Condition aggravated [Recovered/Resolved]
  - Asthma exercise induced [Recovered/Resolved]
  - Product quality issue [Unknown]
  - Inhalation therapy [Unknown]
  - Drug ineffective [Unknown]

NARRATIVE: CASE EVENT DATE: 201402
